FAERS Safety Report 7155345-1 (Version None)
Quarter: 2010Q4

REPORT INFORMATION
  Report Type: 
  Country: None (occurrence: None)
  Receive Date: 20101214
  Receipt Date: 20101206
  Transmission Date: 20110411
  Serious: Yes (Other)
  Sender: FDA-Public Use
  Company Number: US-BIOGENIDEC-2010BI033734

PATIENT
  Age: 48 Year
  Sex: Female

DRUGS (2)
  1. AVONEX [Suspect]
     Indication: MULTIPLE SCLEROSIS
     Route: 030
     Dates: start: 20040620, end: 20070120
  2. AVONEX [Suspect]
     Route: 030
     Dates: start: 20080219

REACTIONS (2)
  - BREAST CANCER [None]
  - INJECTION SITE IRRITATION [None]
